FAERS Safety Report 7438213-7 (Version None)
Quarter: 2011Q2

REPORT INFORMATION
  Report Type: 
  Country: None (occurrence: None)
  Receive Date: 20110426
  Receipt Date: 20110321
  Transmission Date: 20111010
  Serious: Yes (Hospitalization, Other)
  Sender: FDA-Public Use
  Company Number: US-BAYER-2011-003216

PATIENT
  Age: 17 Year
  Sex: Female
  Weight: 48 kg

DRUGS (5)
  1. YASMIN [Suspect]
     Indication: UTERINE DISORDER
  2. OCELLA [Suspect]
     Indication: UTERINE DISORDER
  3. NAPROXEN [Concomitant]
     Dosage: UNK
     Dates: start: 20080101
  4. YASMIN [Suspect]
     Indication: CONTRACEPTION
     Dosage: UNK
  5. OCELLA [Suspect]
     Indication: CONTRACEPTION
     Dosage: UNK

REACTIONS (2)
  - GALLBLADDER INJURY [None]
  - CHOLECYSTITIS [None]
